FAERS Safety Report 12357013 (Version 2)
Quarter: 2016Q2

REPORT INFORMATION
  Report Type: Spontaneous
  Country: US (occurrence: US)
  Receive Date: 20160511
  Receipt Date: 20160610
  Transmission Date: 20160815
  Serious: Yes (Hospitalization)
  Sender: FDA-Public Use
  Company Number: US-VERTEX PHARMACEUTICALS-2016-003089

PATIENT
  Age: 21 Year
  Sex: Male

DRUGS (9)
  1. NEXIUM [Concomitant]
     Active Substance: ESOMEPRAZOLE MAGNESIUM
  2. ERYTHROMYCIN. [Concomitant]
     Active Substance: ERYTHROMYCIN
  3. ZYVOX [Concomitant]
     Active Substance: LINEZOLID
  4. ZENPEP [Concomitant]
     Active Substance: PANCRELIPASE AMYLASE\PANCRELIPASE LIPASE\PANCRELIPASE PROTEASE
  5. VITAMIN K [Concomitant]
     Active Substance: PHYTONADIONE
  6. ALBUTEROL. [Concomitant]
     Active Substance: ALBUTEROL
  7. CALCIFEROL [Concomitant]
     Active Substance: ERGOCALCIFEROL
  8. ORKAMBI [Suspect]
     Active Substance: IVACAFTOR\LUMACAFTOR
     Indication: CYSTIC FIBROSIS
     Dosage: 2 DF, BID
     Route: 048
     Dates: start: 201510
  9. ETHAMBUTOL [Concomitant]
     Active Substance: ETHAMBUTOL HYDROCHLORIDE

REACTIONS (1)
  - Haemoptysis [Recovered/Resolved]

NARRATIVE: CASE EVENT DATE: 20160425
